FAERS Safety Report 9002177 (Version 1)
Quarter: 2013Q1

REPORT INFORMATION
  Report Type: Spontaneous
  Country: US (occurrence: None)
  Receive Date: 20130103
  Receipt Date: 20130103
  Transmission Date: 20140127
  Serious: No
  Sender: FDA-Public Use
  Company Number: None

PATIENT
  Age: 68 Year
  Sex: Female

DRUGS (2)
  1. XELODA [Suspect]
     Indication: NEOPLASM MALIGNANT
     Dosage: 1,000 MG  BID  PO
     Route: 048
     Dates: start: 20120626
  2. TEMODAR [Suspect]
     Indication: NEOPLASM MALIGNANT
     Dosage: 250 MG  DAILY  PO
     Route: 048
     Dates: start: 20120703

REACTIONS (5)
  - Dry mouth [None]
  - Fatigue [None]
  - Dry eye [None]
  - Glossodynia [None]
  - Cheilitis [None]
